FAERS Safety Report 8738602 (Version 5)
Quarter: 2012Q4

REPORT INFORMATION
  Report Type: 
  Country: GB (occurrence: GB)
  Receive Date: 20120823
  Receipt Date: 20121009
  Transmission Date: 20130627
  Serious: Yes (Hospitalization, Other)
  Sender: FDA-Public Use
  Company Number: PHFR2012GB004623

PATIENT
  Age: 58 None
  Sex: Female

DRUGS (2)
  1. ZOMETA [Suspect]
     Indication: METASTASES TO BONE
     Dosage: 4 mg, UNK
     Route: 042
     Dates: start: 201101, end: 201206
  2. ANASTROZOLE [Concomitant]
     Indication: BREAST CANCER METASTATIC
     Dosage: 1 mg, UNK
     Route: 048

REACTIONS (3)
  - Osteonecrosis of jaw [Unknown]
  - Sinus disorder [Unknown]
  - Metastases to bone [Unknown]
